FAERS Safety Report 13105325 (Version 1)
Quarter: 2017Q1

REPORT INFORMATION
  Report Type: Spontaneous
  Country: US (occurrence: US)
  Receive Date: 20170111
  Receipt Date: 20170111
  Transmission Date: 20170428
  Serious: No
  Sender: FDA-Public Use
  Company Number: US-PFIZER INC-2017009361

PATIENT
  Age: 68 Year

DRUGS (1)
  1. LYRICA [Suspect]
     Active Substance: PREGABALIN
     Dosage: 50 MG, UNK

REACTIONS (8)
  - Peripheral swelling [Recovering/Resolving]
  - Swelling face [Not Recovered/Not Resolved]
  - Joint swelling [Recovering/Resolving]
  - Limb discomfort [Recovered/Resolved]
  - Fatigue [Unknown]
  - Abdominal distension [Unknown]
  - Intentional product use issue [Unknown]
  - Swelling [Unknown]
